FAERS Safety Report 6875017-8 (Version None)
Quarter: 2010Q2

REPORT INFORMATION
  Report Type: 
  Country: None (occurrence: None)
  Receive Date: 20100610
  Receipt Date: 20100306
  Transmission Date: 20101027
  Serious: No
  Sender: FDA-Public Use
  Company Number: 2010SP014577

PATIENT
  Sex: Female

DRUGS (7)
  1. SAPHRIS [Suspect]
     Indication: DEPRESSION
     Dosage: 5  MG
     Dates: start: 20100304
  2. SAPHRIS [Suspect]
     Indication: HALLUCINATION, AUDITORY
     Dosage: 5  MG
     Dates: start: 20100304
  3. ADVIL LIQUI-GELS [Concomitant]
  4. CORICIDIN [Concomitant]
  5. AVAPRO [Concomitant]
  6. SIMVASTATIN [Concomitant]
  7. ALENDRONATE SODIUM [Concomitant]

REACTIONS (1)
  - STRABISMUS [None]
